FAERS Safety Report 23676563 (Version 1)
Quarter: 2024Q1

REPORT INFORMATION
  Report Type: Spontaneous
  Country: CA (occurrence: None)
  Receive Date: 20240327
  Receipt Date: 20240327
  Transmission Date: 20240409
  Serious: Yes (Hospitalization, Other)
  Sender: FDA-Public Use
  Company Number: CA-PFIZER INC-202400069654

PATIENT
  Age: 9 Decade
  Sex: Male

DRUGS (2)
  1. METHOTREXATE [Suspect]
     Active Substance: METHOTREXATE
     Indication: Corneal epithelial downgrowth
  2. BEVACIZUMAB [Concomitant]
     Active Substance: BEVACIZUMAB
     Indication: Corneal epithelial downgrowth

REACTIONS (5)
  - Corneal disorder [Recovered/Resolved]
  - Eyelid disorder [Recovered/Resolved]
  - Neoplasm malignant [Recovered/Resolved]
  - Retinal pigment epitheliopathy [Recovered/Resolved]
  - Product use in unapproved indication [Unknown]
